FAERS Safety Report 14818934 (Version 2)
Quarter: 2018Q2

REPORT INFORMATION
  Report Type: Other
  Country: CA (occurrence: CA)
  Receive Date: 20180427
  Receipt Date: 20180529
  Transmission Date: 20180711
  Serious: Yes (Other)
  Sender: FDA-Public Use
  Company Number: CA-APOTEX-2018AP010995

PATIENT
  Age: 42 Month
  Sex: Male

DRUGS (1)
  1. FLUCONAZOLE. [Suspect]
     Active Substance: FLUCONAZOLE
     Indication: CUTANEOUS LEISHMANIASIS
     Dosage: 100 MG, QD
     Route: 048

REACTIONS (2)
  - Cutaneous leishmaniasis [Recovered/Resolved]
  - Drug ineffective [Recovered/Resolved]
